FAERS Safety Report 16462213 (Version 5)
Quarter: 2020Q1

REPORT INFORMATION
  Report Type: Report from Study
  Country: US (occurrence: US)
  Receive Date: 20190621
  Receipt Date: 20200113
  Transmission Date: 20200409
  Serious: No
  Sender: FDA-Public Use
  Company Number: US-KYOWAKIRIN-2019BKK009596

PATIENT

DRUGS (3)
  1. POTELIGEO [Suspect]
     Active Substance: MOGAMULIZUMAB-KPKC
     Dosage: UNKNOWN, 1X/2 WEEKS
     Route: 065
     Dates: start: 2019, end: 2019
  2. POTELIGEO [Suspect]
     Active Substance: MOGAMULIZUMAB-KPKC
     Indication: CUTANEOUS T-CELL LYMPHOMA
     Dosage: UNKNOWN, 1X/WEEK
     Route: 065
     Dates: start: 20190606, end: 20200102
  3. POTELIGEO [Suspect]
     Active Substance: MOGAMULIZUMAB-KPKC
     Dosage: UNKNOWN, 1X/4 WEEKS
     Route: 065
     Dates: start: 2019, end: 2019

REACTIONS (14)
  - Arthropathy [Unknown]
  - Rash macular [Unknown]
  - Haemoglobin decreased [Unknown]
  - Decreased appetite [Recovered/Resolved]
  - Pruritus [Recovered/Resolved]
  - Infusion site reaction [Unknown]
  - White blood cell count decreased [Unknown]
  - Rash [Recovered/Resolved]
  - Arthralgia [Recovering/Resolving]
  - Drug eruption [Recovering/Resolving]
  - Fatigue [Not Recovered/Not Resolved]
  - Inappropriate schedule of product administration [Recovered/Resolved]
  - Musculoskeletal pain [Recovering/Resolving]
  - Peripheral swelling [Unknown]

NARRATIVE: CASE EVENT DATE: 2019
